FAERS Safety Report 23538813 (Version 15)
Quarter: 2025Q3

REPORT INFORMATION
  Report Type: Spontaneous
  Country: CA (occurrence: CA)
  Receive Date: 20240219
  Receipt Date: 20250822
  Transmission Date: 20251021
  Serious: Yes (Death, Life-Threatening, Hospitalization, Disabling, Congenital Anomaly, Other)
  Sender: NOVARTIS
  Company Number: CA-002147023-NVSC2024CA031594

PATIENT
  Age: 43 Year
  Sex: Female
  Weight: 96 kg

DRUGS (291)
  1. AIMOVIG [Suspect]
     Active Substance: ERENUMAB-AOOE
     Indication: Rheumatoid arthritis
     Route: 065
  2. AIMOVIG [Suspect]
     Active Substance: ERENUMAB-AOOE
     Indication: Migraine
     Route: 058
  3. AIMOVIG [Suspect]
     Active Substance: ERENUMAB-AOOE
     Route: 058
  4. AIMOVIG [Suspect]
     Active Substance: ERENUMAB-AOOE
     Route: 065
  5. AIMOVIG [Suspect]
     Active Substance: ERENUMAB-AOOE
     Route: 065
  6. COSENTYX [Suspect]
     Active Substance: SECUKINUMAB
     Indication: Psoriatic arthropathy
     Route: 065
  7. COSENTYX [Suspect]
     Active Substance: SECUKINUMAB
     Indication: Arthropathy
  8. COSENTYX [Suspect]
     Active Substance: SECUKINUMAB
     Indication: Psoriasis
  9. DICLOFENAC [Suspect]
     Active Substance: DICLOFENAC
     Indication: Product used for unknown indication
     Route: 065
  10. DICLOFENAC [Suspect]
     Active Substance: DICLOFENAC
     Indication: Rheumatoid arthritis
     Route: 065
  11. DICLOFENAC [Suspect]
     Active Substance: DICLOFENAC
     Route: 065
  12. DICLOFENAC [Suspect]
     Active Substance: DICLOFENAC
     Route: 065
  13. DICLOFENAC [Suspect]
     Active Substance: DICLOFENAC
     Route: 065
  14. TRIAMCINOLONE [Suspect]
     Active Substance: TRIAMCINOLONE
     Indication: Product used for unknown indication
     Route: 065
  15. TRIAMCINOLONE [Suspect]
     Active Substance: TRIAMCINOLONE
     Indication: Rheumatoid arthritis
     Route: 014
  16. ADALIMUMAB [Suspect]
     Active Substance: ADALIMUMAB
     Indication: Rheumatoid arthritis
     Route: 058
  17. ADALIMUMAB [Suspect]
     Active Substance: ADALIMUMAB
     Route: 057
  18. ADALIMUMAB [Suspect]
     Active Substance: ADALIMUMAB
     Route: 058
  19. ADALIMUMAB [Suspect]
     Active Substance: ADALIMUMAB
     Route: 065
  20. ADALIMUMAB [Suspect]
     Active Substance: ADALIMUMAB
     Route: 058
  21. ETANERCEPT [Suspect]
     Active Substance: ETANERCEPT
     Indication: Rheumatoid arthritis
     Dosage: 50 MG, QW (1 EVERY 1 WEEKS)
     Route: 058
  22. CANDESARTAN [Suspect]
     Active Substance: CANDESARTAN
     Indication: Rheumatoid arthritis
     Route: 048
  23. CANDESARTAN [Suspect]
     Active Substance: CANDESARTAN
     Indication: Migraine
     Route: 065
  24. LEFLUNOMIDE [Suspect]
     Active Substance: LEFLUNOMIDE
     Indication: Rheumatoid arthritis
     Dosage: 20 MG, QD
     Route: 048
  25. LEFLUNOMIDE [Suspect]
     Active Substance: LEFLUNOMIDE
     Dosage: 10 MG, QD
     Route: 048
  26. LEFLUNOMIDE [Suspect]
     Active Substance: LEFLUNOMIDE
     Route: 048
  27. LEFLUNOMIDE [Suspect]
     Active Substance: LEFLUNOMIDE
     Route: 048
  28. LEFLUNOMIDE [Suspect]
     Active Substance: LEFLUNOMIDE
     Route: 048
  29. LEFLUNOMIDE [Suspect]
     Active Substance: LEFLUNOMIDE
     Route: 048
  30. OXYCODONE [Suspect]
     Active Substance: OXYCODONE
     Indication: Product used for unknown indication
     Route: 065
  31. PANTOPRAZOLE [Suspect]
     Active Substance: PANTOPRAZOLE
     Indication: Product used for unknown indication
     Route: 065
  32. ERELZI [Suspect]
     Active Substance: ETANERCEPT-SZZS
     Indication: Rheumatoid arthritis
     Dosage: 50 MG, QW
     Route: 058
  33. ERELZI [Suspect]
     Active Substance: ETANERCEPT-SZZS
     Route: 065
  34. ERELZI [Suspect]
     Active Substance: ETANERCEPT-SZZS
     Route: 058
  35. ERELZI [Suspect]
     Active Substance: ETANERCEPT-SZZS
     Route: 059
  36. ERELZI [Suspect]
     Active Substance: ETANERCEPT-SZZS
     Route: 059
  37. MAGNESIUM [Suspect]
     Active Substance: MAGNESIUM
     Indication: Product used for unknown indication
     Route: 065
  38. MAGNESIUM [Suspect]
     Active Substance: MAGNESIUM
     Route: 065
  39. MAGNESIUM [Suspect]
     Active Substance: MAGNESIUM
     Route: 065
  40. ALENDRONIC ACID [Suspect]
     Active Substance: ALENDRONIC ACID
     Indication: Rheumatoid arthritis
     Route: 048
  41. RITUXIMAB [Suspect]
     Active Substance: RITUXIMAB
     Indication: Rheumatoid arthritis
     Route: 065
  42. RITUXIMAB [Suspect]
     Active Substance: RITUXIMAB
     Route: 043
  43. RITUXIMAB [Suspect]
     Active Substance: RITUXIMAB
     Route: 058
  44. RITUXIMAB [Suspect]
     Active Substance: RITUXIMAB
     Route: 065
  45. RITUXIMAB [Suspect]
     Active Substance: RITUXIMAB
     Route: 065
  46. RITUXIMAB [Suspect]
     Active Substance: RITUXIMAB
     Route: 048
  47. RITUXIMAB [Suspect]
     Active Substance: RITUXIMAB
     Route: 058
  48. RITUXIMAB [Suspect]
     Active Substance: RITUXIMAB
     Route: 042
  49. RITUXIMAB [Suspect]
     Active Substance: RITUXIMAB
     Route: 050
  50. RITUXIMAB [Suspect]
     Active Substance: RITUXIMAB
     Route: 065
  51. RITUXIMAB [Suspect]
     Active Substance: RITUXIMAB
     Route: 043
  52. RITUXIMAB [Suspect]
     Active Substance: RITUXIMAB
     Route: 065
  53. RITUXIMAB [Suspect]
     Active Substance: RITUXIMAB
     Route: 065
  54. RITUXIMAB [Suspect]
     Active Substance: RITUXIMAB
     Route: 065
  55. RITUXIMAB [Suspect]
     Active Substance: RITUXIMAB
     Route: 042
  56. RITUXIMAB [Suspect]
     Active Substance: RITUXIMAB
     Route: 042
  57. RITUXIMAB [Suspect]
     Active Substance: RITUXIMAB
     Route: 042
  58. RITUXIMAB [Suspect]
     Active Substance: RITUXIMAB
     Route: 042
  59. RITUXIMAB [Suspect]
     Active Substance: RITUXIMAB
     Route: 042
  60. RITUXIMAB [Suspect]
     Active Substance: RITUXIMAB
     Route: 042
  61. METFORMIN HYDROCHLORIDE [Suspect]
     Active Substance: METFORMIN HYDROCHLORIDE
     Indication: Migraine
     Route: 065
  62. DICLOFENAC POTASSIUM [Suspect]
     Active Substance: DICLOFENAC POTASSIUM
     Indication: Product used for unknown indication
     Route: 065
  63. DICLOFENAC SODIUM [Suspect]
     Active Substance: DICLOFENAC SODIUM
     Indication: Product used for unknown indication
     Route: 065
  64. DICLOFENAC SODIUM [Suspect]
     Active Substance: DICLOFENAC SODIUM
     Indication: Rheumatoid arthritis
     Route: 065
  65. DICLOFENAC SODIUM [Suspect]
     Active Substance: DICLOFENAC SODIUM
     Route: 065
  66. DICLOFENAC SODIUM [Suspect]
     Active Substance: DICLOFENAC SODIUM
     Route: 065
  67. HYRIMOZ [Suspect]
     Active Substance: ADALIMUMAB-ADAZ
     Indication: Rheumatoid arthritis
     Route: 065
  68. HYRIMOZ [Suspect]
     Active Substance: ADALIMUMAB-ADAZ
     Route: 058
  69. HYRIMOZ [Suspect]
     Active Substance: ADALIMUMAB-ADAZ
     Route: 058
  70. HYRIMOZ [Suspect]
     Active Substance: ADALIMUMAB-ADAZ
     Route: 065
  71. HYRIMOZ [Suspect]
     Active Substance: ADALIMUMAB-ADAZ
     Route: 065
  72. CYANOCOBALAMIN [Suspect]
     Active Substance: CYANOCOBALAMIN
     Indication: Product used for unknown indication
     Route: 065
  73. SULFASALAZINE [Suspect]
     Active Substance: SULFASALAZINE
     Indication: Rheumatoid arthritis
     Route: 065
  74. SULFASALAZINE [Suspect]
     Active Substance: SULFASALAZINE
     Dosage: 2 G, QD
     Route: 048
  75. SULFASALAZINE [Suspect]
     Active Substance: SULFASALAZINE
     Dosage: 300 MG, QD
     Route: 048
  76. SULFASALAZINE [Suspect]
     Active Substance: SULFASALAZINE
     Route: 048
  77. SULFASALAZINE [Suspect]
     Active Substance: SULFASALAZINE
     Dosage: 2 G, QD (1 G, BID)
     Route: 048
  78. SULFASALAZINE [Suspect]
     Active Substance: SULFASALAZINE
     Dosage: 1 G, QD
     Route: 058
  79. SULFASALAZINE [Suspect]
     Active Substance: SULFASALAZINE
     Dosage: 2 DOSAGE FORM, QD (1 DOSAGE FORM, BID)
     Route: 048
  80. SULFASALAZINE [Suspect]
     Active Substance: SULFASALAZINE
     Route: 048
  81. SULFASALAZINE [Suspect]
     Active Substance: SULFASALAZINE
     Route: 048
  82. SULFASALAZINE [Suspect]
     Active Substance: SULFASALAZINE
     Route: 048
  83. SULFASALAZINE [Suspect]
     Active Substance: SULFASALAZINE
     Dosage: 1 G, QD
     Route: 048
  84. SULFASALAZINE [Suspect]
     Active Substance: SULFASALAZINE
     Dosage: 200 MG, QD (300 MILLIGRAM)
     Route: 048
  85. SULFASALAZINE [Suspect]
     Active Substance: SULFASALAZINE
     Route: 048
  86. SULFASALAZINE [Suspect]
     Active Substance: SULFASALAZINE
     Dosage: 1 DOSAGE FORM, BID
     Route: 065
  87. SULFASALAZINE [Suspect]
     Active Substance: SULFASALAZINE
     Dosage: 1 G, QD
     Route: 065
  88. SULFASALAZINE [Suspect]
     Active Substance: SULFASALAZINE
     Dosage: 1 G, BID
     Route: 065
  89. SULFASALAZINE [Suspect]
     Active Substance: SULFASALAZINE
     Route: 065
  90. SULFASALAZINE [Suspect]
     Active Substance: SULFASALAZINE
     Dosage: 2 G, QD
     Route: 065
  91. SULFASALAZINE [Suspect]
     Active Substance: SULFASALAZINE
     Dosage: 300 MG, QD
     Route: 065
  92. SULFASALAZINE [Suspect]
     Active Substance: SULFASALAZINE
     Route: 058
  93. SULFASALAZINE [Suspect]
     Active Substance: SULFASALAZINE
     Route: 065
  94. SULFASALAZINE [Suspect]
     Active Substance: SULFASALAZINE
     Route: 065
  95. SULFASALAZINE [Suspect]
     Active Substance: SULFASALAZINE
     Route: 048
  96. SULFASALAZINE [Suspect]
     Active Substance: SULFASALAZINE
     Route: 065
  97. SULFASALAZINE [Suspect]
     Active Substance: SULFASALAZINE
     Route: 065
  98. FOLIC ACID [Suspect]
     Active Substance: FOLIC ACID
     Indication: Rheumatoid arthritis
     Route: 048
  99. FOLIC ACID [Suspect]
     Active Substance: FOLIC ACID
     Route: 065
  100. FOLIC ACID [Suspect]
     Active Substance: FOLIC ACID
     Route: 065
  101. FOLIC ACID [Suspect]
     Active Substance: FOLIC ACID
     Route: 065
  102. FOLIC ACID [Suspect]
     Active Substance: FOLIC ACID
     Route: 065
  103. FOLIC ACID [Suspect]
     Active Substance: FOLIC ACID
     Route: 065
  104. FOLIC ACID [Suspect]
     Active Substance: FOLIC ACID
     Route: 065
  105. ACETAMINOPHEN AND CODEINE [Suspect]
     Active Substance: ACETAMINOPHEN\CODEINE PHOSPHATE
     Indication: Rheumatoid arthritis
     Route: 065
  106. ACTEMRA [Suspect]
     Active Substance: TOCILIZUMAB
     Indication: Rheumatoid arthritis
     Route: 058
  107. ACTEMRA [Suspect]
     Active Substance: TOCILIZUMAB
     Route: 042
  108. ACTEMRA [Suspect]
     Active Substance: TOCILIZUMAB
     Route: 042
  109. ACTEMRA [Suspect]
     Active Substance: TOCILIZUMAB
     Route: 042
  110. ACTEMRA [Suspect]
     Active Substance: TOCILIZUMAB
     Route: 065
  111. ACTEMRA [Suspect]
     Active Substance: TOCILIZUMAB
     Route: 042
  112. ACTEMRA [Suspect]
     Active Substance: TOCILIZUMAB
     Route: 065
  113. ACTEMRA [Suspect]
     Active Substance: TOCILIZUMAB
     Route: 065
  114. ACTEMRA [Suspect]
     Active Substance: TOCILIZUMAB
     Route: 065
  115. ACTEMRA [Suspect]
     Active Substance: TOCILIZUMAB
     Route: 042
  116. ACTEMRA [Suspect]
     Active Substance: TOCILIZUMAB
     Route: 065
  117. ACTEMRA [Suspect]
     Active Substance: TOCILIZUMAB
     Route: 065
  118. ACTEMRA [Suspect]
     Active Substance: TOCILIZUMAB
     Route: 065
  119. ACTEMRA [Suspect]
     Active Substance: TOCILIZUMAB
     Route: 058
  120. ACTEMRA [Suspect]
     Active Substance: TOCILIZUMAB
     Route: 065
  121. ACTEMRA [Suspect]
     Active Substance: TOCILIZUMAB
     Route: 065
  122. CELECOXIB [Suspect]
     Active Substance: CELECOXIB
     Indication: Product used for unknown indication
     Dosage: 1 DOSAGE FORM, QD
     Route: 065
  123. CELECOXIB [Suspect]
     Active Substance: CELECOXIB
     Dosage: 2 DOSAGE FORM, QD
     Route: 065
  124. CETIRIZINE HYDROCHLORIDE [Suspect]
     Active Substance: CETIRIZINE HYDROCHLORIDE
     Indication: Rheumatoid arthritis
     Route: 065
  125. CETIRIZINE HYDROCHLORIDE [Suspect]
     Active Substance: CETIRIZINE HYDROCHLORIDE
     Route: 048
  126. CETIRIZINE HYDROCHLORIDE [Suspect]
     Active Substance: CETIRIZINE HYDROCHLORIDE
     Route: 048
  127. CETIRIZINE HYDROCHLORIDE [Suspect]
     Active Substance: CETIRIZINE HYDROCHLORIDE
     Route: 065
  128. CETIRIZINE HYDROCHLORIDE [Suspect]
     Active Substance: CETIRIZINE HYDROCHLORIDE
     Route: 065
  129. CETIRIZINE HYDROCHLORIDE [Suspect]
     Active Substance: CETIRIZINE HYDROCHLORIDE
     Route: 065
  130. CETIRIZINE HYDROCHLORIDE [Suspect]
     Active Substance: CETIRIZINE HYDROCHLORIDE
     Route: 048
  131. CETIRIZINE HYDROCHLORIDE [Suspect]
     Active Substance: CETIRIZINE HYDROCHLORIDE
     Route: 048
  132. CETIRIZINE HYDROCHLORIDE [Suspect]
     Active Substance: CETIRIZINE HYDROCHLORIDE
     Route: 048
  133. CETIRIZINE HYDROCHLORIDE [Suspect]
     Active Substance: CETIRIZINE HYDROCHLORIDE
     Route: 048
  134. CETIRIZINE HYDROCHLORIDE [Suspect]
     Active Substance: CETIRIZINE HYDROCHLORIDE
     Route: 065
  135. CETIRIZINE HYDROCHLORIDE [Suspect]
     Active Substance: CETIRIZINE HYDROCHLORIDE
     Route: 065
  136. DESOXIMETASONE [Suspect]
     Active Substance: DESOXIMETASONE
     Indication: Rheumatoid arthritis
     Route: 058
  137. DESOXIMETASONE [Suspect]
     Active Substance: DESOXIMETASONE
     Route: 048
  138. DESOXIMETASONE [Suspect]
     Active Substance: DESOXIMETASONE
     Route: 058
  139. DESOXIMETASONE [Suspect]
     Active Substance: DESOXIMETASONE
     Route: 065
  140. DESOXIMETASONE [Suspect]
     Active Substance: DESOXIMETASONE
     Route: 048
  141. DESOXIMETASONE [Suspect]
     Active Substance: DESOXIMETASONE
     Route: 065
  142. DESOXIMETASONE [Suspect]
     Active Substance: DESOXIMETASONE
     Route: 065
  143. DESOXIMETASONE [Suspect]
     Active Substance: DESOXIMETASONE
     Route: 065
  144. DESOXIMETASONE [Suspect]
     Active Substance: DESOXIMETASONE
     Route: 065
  145. DOMPERIDONE [Suspect]
     Active Substance: DOMPERIDONE
     Indication: Product used for unknown indication
     Route: 065
  146. ERGOCALCIFEROL [Suspect]
     Active Substance: ERGOCALCIFEROL
     Indication: Product used for unknown indication
     Route: 065
  147. HYDROXYCHLOROQUINE [Suspect]
     Active Substance: HYDROXYCHLOROQUINE
     Indication: Rheumatoid arthritis
     Route: 048
  148. HYDROXYCHLOROQUINE [Suspect]
     Active Substance: HYDROXYCHLOROQUINE
     Dosage: UNK, QD (1 EVERY 1 DAY)
     Route: 048
  149. HYDROXYCHLOROQUINE [Suspect]
     Active Substance: HYDROXYCHLOROQUINE
     Dosage: 40 MG, QD
     Route: 065
  150. HYDROXYCHLOROQUINE [Suspect]
     Active Substance: HYDROXYCHLOROQUINE
     Route: 048
  151. HYDROXYCHLOROQUINE [Suspect]
     Active Substance: HYDROXYCHLOROQUINE
     Route: 048
  152. LAMOTRIGINE [Suspect]
     Active Substance: LAMOTRIGINE
     Indication: Product used for unknown indication
     Route: 048
  153. LAMOTRIGINE [Suspect]
     Active Substance: LAMOTRIGINE
     Route: 048
  154. LAMOTRIGINE [Suspect]
     Active Substance: LAMOTRIGINE
     Route: 065
  155. LAMOTRIGINE [Suspect]
     Active Substance: LAMOTRIGINE
     Route: 065
  156. LAMOTRIGINE [Suspect]
     Active Substance: LAMOTRIGINE
     Route: 048
  157. METHOTREXATE [Suspect]
     Active Substance: METHOTREXATE
     Indication: Rheumatoid arthritis
     Dosage: 20 MG, QD
     Route: 048
  158. METHOTREXATE [Suspect]
     Active Substance: METHOTREXATE
     Dosage: 25 MG, QW (1 EVERY 1 WEEKS)
     Route: 048
  159. METHOTREXATE [Suspect]
     Active Substance: METHOTREXATE
     Dosage: 20 MG, QD
     Route: 048
  160. METHOTREXATE [Suspect]
     Active Substance: METHOTREXATE
     Dosage: 20 MG, QD
     Route: 048
  161. METHOTREXATE [Suspect]
     Active Substance: METHOTREXATE
     Dosage: 20 MG, QD
     Route: 048
  162. METHOTREXATE [Suspect]
     Active Substance: METHOTREXATE
     Dosage: 25 MG, QD
     Route: 048
  163. METHOTREXATE [Suspect]
     Active Substance: METHOTREXATE
     Dosage: 25 MG, QD
     Route: 048
  164. METHOTREXATE [Suspect]
     Active Substance: METHOTREXATE
     Dosage: 25 MG, QD
     Route: 048
  165. METHOTREXATE [Suspect]
     Active Substance: METHOTREXATE
     Dosage: 25 MG, QD
     Route: 048
  166. METHOTREXATE [Suspect]
     Active Substance: METHOTREXATE
     Dosage: 25 MG, QD
     Route: 048
  167. METHOTREXATE [Suspect]
     Active Substance: METHOTREXATE
     Dosage: 25 MG, QD
     Route: 048
  168. METHOTREXATE [Suspect]
     Active Substance: METHOTREXATE
     Route: 048
  169. METHOTREXATE [Suspect]
     Active Substance: METHOTREXATE
     Route: 048
  170. METHOTREXATE [Suspect]
     Active Substance: METHOTREXATE
     Route: 048
  171. METHOTREXATE [Suspect]
     Active Substance: METHOTREXATE
     Route: 048
  172. METHOTREXATE [Suspect]
     Active Substance: METHOTREXATE
     Route: 048
  173. METHOTREXATE [Suspect]
     Active Substance: METHOTREXATE
     Route: 048
  174. METHOTREXATE [Suspect]
     Active Substance: METHOTREXATE
     Route: 048
  175. METHOTREXATE [Suspect]
     Active Substance: METHOTREXATE
     Route: 048
  176. METHOTREXATE [Suspect]
     Active Substance: METHOTREXATE
     Dosage: 25 MG, QD
     Route: 048
  177. METHOTREXATE [Suspect]
     Active Substance: METHOTREXATE
     Dosage: 25 MG, QD
     Route: 048
  178. METHYLPREDNISOLONE [Suspect]
     Active Substance: METHYLPREDNISOLONE
     Indication: Product used for unknown indication
     Route: 065
  179. MYRBETRIQ [Suspect]
     Active Substance: MIRABEGRON
     Indication: Product used for unknown indication
     Dosage: 1 DOSAGE FORM, QD (DOSAGE FORM: TABLET (EXTENDED-RELEASE))
     Route: 048
  180. MYRBETRIQ [Suspect]
     Active Substance: MIRABEGRON
     Dosage: 1 DOSAGE FORM, QD (DOSAGE FORM: TABLET (EXTENDED-RELEASE)
     Route: 065
  181. MYRBETRIQ [Suspect]
     Active Substance: MIRABEGRON
     Route: 065
  182. NUCALA [Suspect]
     Active Substance: MEPOLIZUMAB
     Indication: Product used for unknown indication
     Route: 065
  183. OTEZLA [Suspect]
     Active Substance: APREMILAST
     Indication: Product used for unknown indication
     Dosage: 6 MG, QD (3 MG, BID)
     Route: 065
  184. OTEZLA [Suspect]
     Active Substance: APREMILAST
     Route: 065
  185. PHENYLEPHRINE HYDROCHLORIDE [Suspect]
     Active Substance: PHENYLEPHRINE HYDROCHLORIDE
     Indication: Rheumatoid arthritis
     Route: 030
  186. PHENYLEPHRINE HYDROCHLORIDE [Suspect]
     Active Substance: PHENYLEPHRINE HYDROCHLORIDE
     Route: 065
  187. PHTHALYLSULFATHIAZOLE [Suspect]
     Active Substance: PHTHALYLSULFATHIAZOLE
     Indication: Rheumatoid arthritis
     Route: 048
  188. PHTHALYLSULFATHIAZOLE [Suspect]
     Active Substance: PHTHALYLSULFATHIAZOLE
     Route: 048
  189. PHTHALYLSULFATHIAZOLE [Suspect]
     Active Substance: PHTHALYLSULFATHIAZOLE
     Route: 065
  190. PHTHALYLSULFATHIAZOLE [Suspect]
     Active Substance: PHTHALYLSULFATHIAZOLE
     Route: 065
  191. PREDNISONE [Suspect]
     Active Substance: PREDNISONE
     Indication: Rheumatoid arthritis
     Route: 048
  192. PREDNISONE [Suspect]
     Active Substance: PREDNISONE
     Route: 048
  193. PREDNISONE [Suspect]
     Active Substance: PREDNISONE
     Route: 048
  194. PREDNISONE [Suspect]
     Active Substance: PREDNISONE
     Route: 065
  195. PSEUDOEPHEDRINE HYDROCHLORIDE [Suspect]
     Active Substance: PSEUDOEPHEDRINE HYDROCHLORIDE
     Indication: Rheumatoid arthritis
     Route: 065
  196. PSEUDOEPHEDRINE HYDROCHLORIDE [Suspect]
     Active Substance: PSEUDOEPHEDRINE HYDROCHLORIDE
     Route: 065
  197. PSEUDOEPHEDRINE HYDROCHLORIDE [Suspect]
     Active Substance: PSEUDOEPHEDRINE HYDROCHLORIDE
     Route: 065
  198. RAMIPRIL [Suspect]
     Active Substance: RAMIPRIL
     Indication: Rheumatoid arthritis
     Route: 016
  199. RAMIPRIL [Suspect]
     Active Substance: RAMIPRIL
     Route: 042
  200. RANITIDINE HYDROCHLORIDE [Suspect]
     Active Substance: RANITIDINE HYDROCHLORIDE
     Indication: Rheumatoid arthritis
     Route: 065
  201. RITUXAN [Suspect]
     Active Substance: RITUXIMAB
     Indication: Rheumatoid arthritis
     Route: 058
  202. RITUXAN [Suspect]
     Active Substance: RITUXIMAB
     Route: 043
  203. RITUXAN [Suspect]
     Active Substance: RITUXIMAB
     Route: 042
  204. RITUXAN [Suspect]
     Active Substance: RITUXIMAB
     Route: 065
  205. SARILUMAB [Suspect]
     Active Substance: SARILUMAB
     Indication: Rheumatoid arthritis
     Route: 065
  206. SIMPONI [Suspect]
     Active Substance: GOLIMUMAB
     Indication: Rheumatoid arthritis
     Route: 058
  207. SIMPONI [Suspect]
     Active Substance: GOLIMUMAB
     Indication: Prostatic specific antigen
     Route: 065
  208. SIMPONI [Suspect]
     Active Substance: GOLIMUMAB
     Route: 058
  209. SIRUKUMAB [Suspect]
     Active Substance: SIRUKUMAB
     Indication: Product used for unknown indication
     Route: 065
  210. STELARA [Suspect]
     Active Substance: USTEKINUMAB
     Indication: Product used for unknown indication
     Route: 058
  211. GOLD SODIUM THIOMALATE [Suspect]
     Active Substance: GOLD SODIUM THIOMALATE
     Indication: Product used for unknown indication
     Route: 065
  212. TOPIRAMATE [Suspect]
     Active Substance: TOPIRAMATE
     Indication: Migraine
     Dosage: 25 MG, QD
     Route: 065
  213. TOPIRAMATE [Suspect]
     Active Substance: TOPIRAMATE
     Route: 065
  214. TOPIRAMATE [Suspect]
     Active Substance: TOPIRAMATE
     Dosage: 3 MG, QD
     Route: 065
  215. TOPIRAMATE [Suspect]
     Active Substance: TOPIRAMATE
     Route: 065
  216. TOPIRAMATE [Suspect]
     Active Substance: TOPIRAMATE
     Dosage: 1 DOSAGE FORM, QD
     Route: 065
  217. POVIDONE-IODINE [Suspect]
     Active Substance: POVIDONE-IODINE
     Indication: Product used for unknown indication
     Route: 065
  218. METHOTREXATE SODIUM [Suspect]
     Active Substance: METHOTREXATE SODIUM
     Indication: Rheumatoid arthritis
     Dosage: 20 MG, QD
     Route: 048
  219. TRAZODONE [Suspect]
     Active Substance: TRAZODONE HYDROCHLORIDE
     Indication: Product used for unknown indication
     Dosage: 1 DOSAGE FORM, QD
     Route: 065
  220. TRETINOIN [Suspect]
     Active Substance: TRETINOIN
     Indication: Product used for unknown indication
     Route: 065
  221. VITAMIN C [Suspect]
     Active Substance: ASCORBIC ACID
     Indication: Product used for unknown indication
     Route: 065
  222. ENBREL [Suspect]
     Active Substance: ETANERCEPT
     Indication: Psoriatic arthropathy
     Route: 065
  223. ENBREL [Suspect]
     Active Substance: ETANERCEPT
     Indication: Rheumatoid arthritis
     Dosage: 50 MG, QW
     Route: 065
  224. ENBREL [Suspect]
     Active Substance: ETANERCEPT
     Route: 065
  225. ENBREL [Suspect]
     Active Substance: ETANERCEPT
     Route: 065
  226. ENBREL [Suspect]
     Active Substance: ETANERCEPT
     Route: 058
  227. ENBREL [Suspect]
     Active Substance: ETANERCEPT
     Route: 065
  228. ERENUMAB-AOOE [Suspect]
     Active Substance: ERENUMAB-AOOE
     Indication: Migraine
     Route: 065
  229. RANITIDINE [Suspect]
     Active Substance: RANITIDINE
     Indication: Rheumatoid arthritis
     Route: 065
  230. ORENCIA [Suspect]
     Active Substance: ABATACEPT
     Indication: Rheumatoid arthritis
     Route: 042
  231. ORENCIA [Suspect]
     Active Substance: ABATACEPT
     Route: 065
  232. CETIRIZINE [Suspect]
     Active Substance: CETIRIZINE HYDROCHLORIDE
     Indication: Rheumatoid arthritis
     Route: 048
  233. CETIRIZINE [Suspect]
     Active Substance: CETIRIZINE HYDROCHLORIDE
     Indication: Off label use
     Route: 048
  234. CETIRIZINE [Suspect]
     Active Substance: CETIRIZINE HYDROCHLORIDE
     Route: 048
  235. CETIRIZINE [Suspect]
     Active Substance: CETIRIZINE HYDROCHLORIDE
     Route: 065
  236. CETIRIZINE [Suspect]
     Active Substance: CETIRIZINE HYDROCHLORIDE
     Route: 065
  237. CETIRIZINE [Suspect]
     Active Substance: CETIRIZINE HYDROCHLORIDE
     Route: 065
  238. CETIRIZINE [Suspect]
     Active Substance: CETIRIZINE HYDROCHLORIDE
     Route: 048
  239. CETIRIZINE [Suspect]
     Active Substance: CETIRIZINE HYDROCHLORIDE
     Route: 048
  240. CETIRIZINE [Suspect]
     Active Substance: CETIRIZINE HYDROCHLORIDE
     Route: 048
  241. CETIRIZINE [Suspect]
     Active Substance: CETIRIZINE HYDROCHLORIDE
     Route: 065
  242. CETIRIZINE [Suspect]
     Active Substance: CETIRIZINE HYDROCHLORIDE
     Route: 065
  243. CETIRIZINE [Suspect]
     Active Substance: CETIRIZINE HYDROCHLORIDE
     Route: 048
  244. CETIRIZINE [Suspect]
     Active Substance: CETIRIZINE HYDROCHLORIDE
     Dosage: 10 MG, QD
     Route: 065
  245. CETIRIZINE [Suspect]
     Active Substance: CETIRIZINE HYDROCHLORIDE
     Route: 048
  246. CETIRIZINE [Suspect]
     Active Substance: CETIRIZINE HYDROCHLORIDE
     Route: 048
  247. FLUMETHASONE PIVALATE [Suspect]
     Active Substance: FLUMETHASONE PIVALATE
     Indication: Product used for unknown indication
     Route: 065
  248. GOLD [Suspect]
     Active Substance: GOLD
     Indication: Product used for unknown indication
     Route: 065
  249. ACETAMINOPHEN [Suspect]
     Active Substance: ACETAMINOPHEN
     Indication: Product used for unknown indication
     Route: 065
  250. APREMILAST [Suspect]
     Active Substance: APREMILAST
     Indication: Product used for unknown indication
     Dosage: 6 MG, QD
     Route: 065
  251. AZATHIOPRINE [Suspect]
     Active Substance: AZATHIOPRINE
     Indication: Product used for unknown indication
     Route: 065
  252. BETAMETHASONE [Suspect]
     Active Substance: BETAMETHASONE
     Indication: Product used for unknown indication
     Route: 065
  253. BETAMETHASONE [Suspect]
     Active Substance: BETAMETHASONE
     Route: 065
  254. CALCIUM ASCORBATE [Suspect]
     Active Substance: CALCIUM ASCORBATE
     Indication: Product used for unknown indication
     Route: 065
  255. CERTOLIZUMAB PEGOL [Suspect]
     Active Substance: CERTOLIZUMAB PEGOL
     Indication: Rheumatoid arthritis
     Route: 065
  256. CERTOLIZUMAB PEGOL [Suspect]
     Active Substance: CERTOLIZUMAB PEGOL
     Indication: Psoriasis
     Route: 058
  257. CHLORHEXIDINE GLUCONATE [Suspect]
     Active Substance: CHLORHEXIDINE GLUCONATE
     Indication: Product used for unknown indication
     Route: 065
  258. CHLORHEXIDINE GLUCONATE [Suspect]
     Active Substance: CHLORHEXIDINE GLUCONATE
     Route: 065
  259. CORTISONE ACETATE [Suspect]
     Active Substance: CORTISONE ACETATE
     Indication: Rheumatoid arthritis
     Route: 065
  260. CORTISONE ACETATE [Suspect]
     Active Substance: CORTISONE ACETATE
     Route: 065
  261. CORTISONE ACETATE [Suspect]
     Active Substance: CORTISONE ACETATE
     Route: 065
  262. CORTISONE ACETATE [Suspect]
     Active Substance: CORTISONE ACETATE
     Route: 065
  263. CORTISONE ACETATE [Suspect]
     Active Substance: CORTISONE ACETATE
     Route: 065
  264. FLONASE [Suspect]
     Active Substance: FLUTICASONE PROPIONATE
     Indication: Product used for unknown indication
     Route: 065
  265. FLUTICASONE PROPIONATE [Suspect]
     Active Substance: FLUTICASONE PROPIONATE
     Indication: Product used for unknown indication
     Route: 065
  266. FLUTICASONE [Suspect]
     Active Substance: FLUTICASONE
     Indication: Product used for unknown indication
     Route: 065
  267. FOSAMAX [Suspect]
     Active Substance: ALENDRONATE SODIUM
     Indication: Rheumatoid arthritis
     Route: 065
  268. GOLD SODIUM THIOMALATE [Suspect]
     Active Substance: GOLD SODIUM THIOMALATE
     Indication: Product used for unknown indication
     Route: 030
  269. HUMIRA [Suspect]
     Active Substance: ADALIMUMAB
     Indication: Rheumatoid arthritis
     Route: 065
  270. HUMIRA [Suspect]
     Active Substance: ADALIMUMAB
     Route: 065
  271. HUMIRA [Suspect]
     Active Substance: ADALIMUMAB
     Route: 065
  272. HYDROCORTISONE BUTYRATE [Suspect]
     Active Substance: HYDROCORTISONE BUTYRATE
     Indication: Rheumatoid arthritis
     Route: 065
  273. IODINE [Suspect]
     Active Substance: IODINE
     Indication: Product used for unknown indication
     Route: 065
  274. PHENYLEPHRINE HYDROCHLORIDE [Suspect]
     Active Substance: PHENYLEPHRINE HYDROCHLORIDE
     Indication: Rheumatoid arthritis
     Route: 030
  275. PSEUDOEPHEDRINE [Suspect]
     Active Substance: PSEUDOEPHEDRINE
     Indication: Rheumatoid arthritis
     Route: 065
  276. PSEUDOEPHEDRINE [Suspect]
     Active Substance: PSEUDOEPHEDRINE
     Route: 065
  277. PSEUDOEPHEDRINE [Suspect]
     Active Substance: PSEUDOEPHEDRINE
     Route: 065
  278. ATIVAN [Concomitant]
     Active Substance: LORAZEPAM
     Indication: Product used for unknown indication
     Route: 065
  279. CALCIUM [Concomitant]
     Active Substance: CALCIUM
     Indication: Product used for unknown indication
     Route: 065
  280. ACETAMINOPHEN [Concomitant]
     Active Substance: ACETAMINOPHEN
     Indication: Product used for unknown indication
     Route: 065
  281. CALCIUM GLUBIONATE [Concomitant]
     Active Substance: CALCIUM GLUBIONATE
     Indication: Product used for unknown indication
     Route: 065
  282. CYANOCOBALAMIN [Concomitant]
     Active Substance: CYANOCOBALAMIN
     Indication: Product used for unknown indication
     Route: 065
  283. GLUCOSAMINE [Concomitant]
     Active Substance: GLUCOSAMINE
     Indication: Product used for unknown indication
     Route: 065
  284. IBUPROFEN [Concomitant]
     Active Substance: IBUPROFEN
     Indication: Product used for unknown indication
     Route: 065
  285. LANSOPRAZOLE [Concomitant]
     Active Substance: LANSOPRAZOLE
     Indication: Product used for unknown indication
     Route: 065
  286. LISINOPRIL [Concomitant]
     Active Substance: LISINOPRIL
     Indication: Product used for unknown indication
     Route: 065
  287. PREDNISOLONE [Concomitant]
     Active Substance: PREDNISOLONE
     Indication: Product used for unknown indication
     Route: 065
  288. RISEDRONATE SODIUM [Concomitant]
     Active Substance: RISEDRONATE SODIUM
     Indication: Product used for unknown indication
     Route: 065
  289. SULFASALAZINE [Concomitant]
     Active Substance: SULFASALAZINE
     Indication: Product used for unknown indication
     Route: 065
  290. FISH OIL [Concomitant]
     Active Substance: FISH OIL
     Indication: Product used for unknown indication
     Route: 065
  291. QUETIAPINE FUMARATE [Concomitant]
     Active Substance: QUETIAPINE FUMARATE
     Indication: Product used for unknown indication
     Route: 065

REACTIONS (45)
  - Abdominal discomfort [Fatal]
  - Abdominal pain upper [Fatal]
  - Alopecia [Fatal]
  - Anti-cyclic citrullinated peptide antibody positive [Fatal]
  - Arthralgia [Fatal]
  - Arthropathy [Fatal]
  - Asthenia [Fatal]
  - Back injury [Fatal]
  - Blepharospasm [Fatal]
  - Blister [Fatal]
  - Blood cholesterol increased [Fatal]
  - Breast cancer stage III [Fatal]
  - Bursitis [Fatal]
  - C-reactive protein increased [Fatal]
  - Confusional state [Fatal]
  - Depression [Fatal]
  - Diarrhoea [Fatal]
  - Dizziness [Fatal]
  - Drug hypersensitivity [Fatal]
  - Dry mouth [Fatal]
  - Duodenal ulcer perforation [Fatal]
  - Epilepsy [Fatal]
  - Facet joint syndrome [Fatal]
  - Fibromyalgia [Fatal]
  - Folliculitis [Fatal]
  - Gait inability [Fatal]
  - Gastrooesophageal reflux disease [Fatal]
  - General physical health deterioration [Fatal]
  - Maternal exposure during pregnancy [Fatal]
  - Product quality issue [Fatal]
  - Contraindicated product administered [Fatal]
  - Off label use [Fatal]
  - Therapeutic product effect decreased [Fatal]
  - Wound infection [Fatal]
  - Treatment failure [Fatal]
  - Normal newborn [Fatal]
  - Pruritus [Fatal]
  - Psoriasis [Fatal]
  - Pulmonary fibrosis [Fatal]
  - Pustular psoriasis [Fatal]
  - Pyrexia [Fatal]
  - Rash vesicular [Fatal]
  - Sinusitis [Fatal]
  - Sleep disorder due to general medical condition, insomnia type [Fatal]
  - Subcutaneous drug absorption impaired [Fatal]
